FAERS Safety Report 10548431 (Version 1)
Quarter: 2014Q4

REPORT INFORMATION
  Report Type: Spontaneous
  Country: US (occurrence: US)
  Receive Date: 20141028
  Receipt Date: 20141028
  Transmission Date: 20150529
  Serious: Yes (Other)
  Sender: FDA-Public Use
  Company Number: US-SA-2014SA146129

PATIENT
  Age: 36 Year
  Sex: Female

DRUGS (4)
  1. UNISOM SLEEPTABS [Suspect]
     Active Substance: DOXYLAMINE SUCCINATE
     Indication: NAUSEA
     Route: 065
  2. LOVENOX [Suspect]
     Active Substance: ENOXAPARIN SODIUM
     Indication: COAGULOPATHY
     Route: 065
     Dates: end: 20140730
  3. LOVENOX [Suspect]
     Active Substance: ENOXAPARIN SODIUM
     Indication: COAGULOPATHY
     Dosage: FIRST, SECOND, THIRD TRIMESTER
     Route: 065
     Dates: start: 201310
  4. ANTIHYPERTENSIVES [Concomitant]
     Active Substance: UNSPECIFIED INGREDIENT
     Indication: BLOOD PRESSURE
     Route: 065

REACTIONS (6)
  - Injection site bruising [Unknown]
  - Exposure during pregnancy [Unknown]
  - Gestational diabetes [Unknown]
  - Nausea [Unknown]
  - Gestational hypertension [Unknown]
  - Gallbladder disorder [Unknown]
